FAERS Safety Report 5574125-1 (Version None)
Quarter: 2007Q4

REPORT INFORMATION
  Report Type: 
  Country: None (occurrence: None)
  Receive Date: 20071221
  Receipt Date: 20071212
  Transmission Date: 20080405
  Serious: Yes (Hospitalization)
  Sender: FDA-Public Use
  Company Number: 2007-03825

PATIENT
  Age: 58 Year
  Sex: Female
  Weight: 46.3 kg

DRUGS (7)
  1. VELCADE [Suspect]
     Indication: MULTIPLE MYELOMA
     Dosage: 270 MG/ , INTRAVENOUS
     Route: 042
     Dates: start: 20071004, end: 20071014
  2. DOXORUBICIN HCL [Suspect]
     Indication: MULTIPLE MYELOMA
     Dosage: INTRAVENOUS
     Route: 042
     Dates: start: 20071004, end: 20071007
  3. DEXAMETHASONE TAB [Suspect]
     Indication: MULTIPLE MYELOMA
     Dosage: 40.00 MG, ORAL
     Route: 048
     Dates: start: 20071004, end: 20071023
  4. RAMIPRIL [Concomitant]
  5. TENORMIN [Concomitant]
  6. NEXIUM [Concomitant]
  7. IBUPROFEN [Concomitant]

REACTIONS (1)
  - BACTERIAL INFECTION [None]
